FAERS Safety Report 21340530 (Version 1)
Quarter: 2022Q3

REPORT INFORMATION
  Report Type: Spontaneous
  Country: US (occurrence: US)
  Receive Date: 20220916
  Receipt Date: 20220916
  Transmission Date: 20221026
  Serious: No
  Sender: FDA-Public Use
  Company Number: US-ELI_LILLY_AND_COMPANY-US202209006465

PATIENT
  Sex: Male
  Weight: 6.349 kg

DRUGS (3)
  1. TADALAFIL [Suspect]
     Active Substance: TADALAFIL
     Indication: Pulmonary arterial hypertension
     Dosage: 6 MG, UNKNOWN (1.2 ML FOR 6 MG,)
     Route: 048
  2. REMODULIN [Suspect]
     Active Substance: TREPROSTINIL
     Indication: Pulmonary arterial hypertension
     Dosage: UNK UNK, UNKNOWN (54 NG/KG/MIN)
     Route: 058
     Dates: start: 20220310
  3. TRACLEER [Concomitant]
     Active Substance: BOSENTAN
     Indication: Product used for unknown indication

REACTIONS (1)
  - Overdose [Unknown]
